FAERS Safety Report 8029518-X (Version None)
Quarter: 2012Q1

REPORT INFORMATION
  Report Type: 
  Country: None (occurrence: None)
  Receive Date: 20120109
  Receipt Date: 20111227
  Transmission Date: 20120608
  Serious: No
  Sender: FDA-Public Use
  Company Number: US-BIOGENIDEC-2011BI048839

PATIENT
  Sex: Female

DRUGS (1)
  1. AVONEX [Suspect]
     Indication: MULTIPLE SCLEROSIS
     Route: 030
     Dates: start: 19991216

REACTIONS (5)
  - INFLUENZA LIKE ILLNESS [None]
  - OPTIC NEURITIS [None]
  - MOBILITY DECREASED [None]
  - COORDINATION ABNORMAL [None]
  - VISUAL ACUITY REDUCED [None]
